FAERS Safety Report 10171798 (Version 1)
Quarter: 2014Q2

REPORT INFORMATION
  Report Type: Spontaneous
  Country: US (occurrence: US)
  Receive Date: 20140514
  Receipt Date: 20140514
  Transmission Date: 20141212
  Serious: Yes (Other)
  Sender: FDA-Public Use
  Company Number: US-BAXTER-2014BAX023595

PATIENT
  Sex: 0

DRUGS (1)
  1. 0.9% SODIUM CHLORIDE INJECTION [Suspect]
     Indication: DEVICE PRIMING
     Route: 065

REACTIONS (3)
  - Device leakage [Unknown]
  - Haemorrhage [Unknown]
  - Cardiac arrest [Unknown]
